FAERS Safety Report 5878048-X (Version None)
Quarter: 2008Q3

REPORT INFORMATION
  Report Type: 
  Country: None (occurrence: None)
  Receive Date: 20080909
  Receipt Date: 20080909
  Transmission Date: 20090109
  Serious: No
  Sender: FDA-Public Use
  Company Number: None

PATIENT
  Age: 46 Year
  Sex: Female
  Weight: 57.61 kg

DRUGS (1)
  1. AMOXICILLIN + CLAVULANATE POTASSIUM [Suspect]
     Indication: INFECTION
     Dosage: 1 TAB TID PO
     Route: 048
     Dates: start: 20080811, end: 20080821

REACTIONS (2)
  - NO REACTION ON PREVIOUS EXPOSURE TO DRUG [None]
  - RASH [None]
